FAERS Safety Report 6153529-2 (Version None)
Quarter: 2009Q2

REPORT INFORMATION
  Report Type: 
  Country: None (occurrence: None)
  Receive Date: 20090413
  Receipt Date: 20090403
  Transmission Date: 20091009
  Serious: Yes (Other)
  Sender: FDA-Public Use
  Company Number: PHHY2009JP01542

PATIENT
  Sex: Male
  Weight: 63 kg

DRUGS (5)
  1. ZOMETA [Suspect]
     Indication: METASTASES TO BONE
     Dosage: UNK
     Route: 042
     Dates: start: 20071201, end: 20081201
  2. CHEMOTHERAPEUTICS NOS [Concomitant]
  3. DOCETAXEL [Concomitant]
     Dosage: UNK
     Dates: start: 20080104
  4. ESTRAMUSTINE [Concomitant]
     Dosage: UNK
     Dates: start: 20080104
  5. CARBOPLATIN [Concomitant]
     Dosage: UNK
     Dates: start: 20080104

REACTIONS (6)
  - GINGIVITIS [None]
  - INFECTION [None]
  - LOOSE TOOTH [None]
  - OSTEONECROSIS [None]
  - TOOTH EXTRACTION [None]
  - TOOTH LOSS [None]
